FAERS Safety Report 5734189-9 (Version None)
Quarter: 2008Q2

REPORT INFORMATION
  Report Type: 
  Country: None (occurrence: None)
  Receive Date: 20080510
  Receipt Date: 20080506
  Transmission Date: 20081010
  Serious: Yes (Death, Life-Threatening, Hospitalization)
  Sender: FDA-Public Use
  Company Number: PHHO2008US00948

PATIENT
  Age: 49 Year
  Sex: Male
  Weight: 97.4 kg

DRUGS (3)
  1. NEORAL [Suspect]
     Indication: LIVER TRANSPLANT
     Dosage: 500 MG/DAILY
     Route: 048
     Dates: start: 20071005, end: 20080107
  2. NEORAL [Suspect]
     Dosage: NO TREATMENT
     Dates: start: 20080108, end: 20080109
  3. NEORAL [Suspect]
     Dosage: 500 MG/DAILY
     Route: 048
     Dates: start: 20070110, end: 20080126

REACTIONS (4)
  - MULTI-ORGAN FAILURE [None]
  - PNEUMONIA [None]
  - PYREXIA [None]
  - SEPSIS [None]
